FAERS Safety Report 11446222 (Version 1)
Quarter: 2015Q3

REPORT INFORMATION
  Report Type: Spontaneous
  Country: US (occurrence: US)
  Receive Date: 20150902
  Receipt Date: 20150902
  Transmission Date: 20151125
  Serious: No
  Sender: FDA-Public Use
  Company Number: ALCN2014US006850

PATIENT
  Sex: Female

DRUGS (1)
  1. PREDNISOLONE ACETATE. [Suspect]
     Active Substance: PREDNISOLONE ACETATE
     Indication: POSTOPERATIVE CARE
     Dosage: 1 UNK, UNK
     Route: 047
     Dates: start: 20141118, end: 20141202

REACTIONS (2)
  - Sensation of foreign body [Recovered/Resolved]
  - Lacrimation increased [Recovered/Resolved]
